FAERS Safety Report 23617015 (Version 1)
Quarter: 2024Q1

REPORT INFORMATION
  Report Type: Spontaneous
  Country: US (occurrence: None)
  Receive Date: 20240311
  Receipt Date: 20240311
  Transmission Date: 20240410
  Serious: Yes (Hospitalization)
  Sender: FDA-Public Use
  Company Number: None

PATIENT
  Age: 91 Year
  Sex: Male

DRUGS (10)
  1. BOSULIF [Suspect]
     Active Substance: BOSUTINIB MONOHYDRATE
     Indication: Chronic myeloid leukaemia
     Dosage: FREQUENCY : DAILY;?
     Route: 048
     Dates: start: 20230109
  2. ATORVASTATIN [Concomitant]
  3. CARVEDILOL [Concomitant]
  4. DIOVAN [Concomitant]
  5. ELIQUIS [Concomitant]
     Active Substance: APIXABAN
  6. ENTRESTO [Concomitant]
  7. FERROUS SULFATE [Concomitant]
     Active Substance: FERROUS SULFATE
  8. FLOMAX [Concomitant]
  9. METFORMIN [Concomitant]
  10. MULTIVITAMIN [Concomitant]

REACTIONS (2)
  - Cardiac disorder [None]
  - Therapy interrupted [None]

NARRATIVE: CASE EVENT DATE: 20240226
